FAERS Safety Report 5427454-6 (Version None)
Quarter: 2007Q3

REPORT INFORMATION
  Report Type: 
  Country: None (occurrence: None)
  Receive Date: 20070824
  Receipt Date: 20070824
  Transmission Date: 20080115
  Serious: Yes (Hospitalization)
  Sender: FDA-Public Use
  Company Number: None

PATIENT
  Age: 76 Year
  Sex: Female
  Weight: 59.4212 kg

DRUGS (1)
  1. HERCEPTIN [Suspect]
     Indication: BREAST CANCER
     Dosage: 240MG IV DRIP
     Route: 041
     Dates: start: 20070822, end: 20070822

REACTIONS (5)
  - ANXIETY [None]
  - DYSPNOEA [None]
  - PRODUCTIVE COUGH [None]
  - THROAT TIGHTNESS [None]
  - WHEEZING [None]
